FAERS Safety Report 12117766 (Version 1)
Quarter: 2016Q1

REPORT INFORMATION
  Report Type: Spontaneous
  Country: US (occurrence: US)
  Receive Date: 20160226
  Receipt Date: 20160226
  Transmission Date: 20160526
  Serious: No
  Sender: FDA-Public Use
  Company Number: US-009507513-1602USA006085

PATIENT
  Sex: Male

DRUGS (1)
  1. NASONEX [Suspect]
     Active Substance: MOMETASONE FUROATE

REACTIONS (4)
  - Incorrect product storage [Unknown]
  - Nasal discomfort [Unknown]
  - Epistaxis [Unknown]
  - Sjogren^s syndrome [Unknown]
